FAERS Safety Report 26001220 (Version 1)
Quarter: 2025Q4

REPORT INFORMATION
  Report Type: Spontaneous
  Country: US (occurrence: US)
  Receive Date: 20251105
  Receipt Date: 20251105
  Transmission Date: 20260118
  Serious: Yes (Death, Hospitalization, Other)
  Sender: AMGEN
  Company Number: US-AMGEN-USASP2025215049

PATIENT
  Age: 43 Year
  Sex: Female

DRUGS (5)
  1. TRASTUZUMAB [Suspect]
     Active Substance: TRASTUZUMAB
     Indication: Invasive ductal breast carcinoma
     Dosage: UNK
     Route: 065
     Dates: start: 2020
  2. TRASTUZUMAB [Suspect]
     Active Substance: TRASTUZUMAB
     Dosage: UNK, FOURTH CYCLE WAS DELAYED THREE MONTHS DUE TO A LAPSE
     Route: 065
     Dates: end: 20211115
  3. DOCETAXEL [Concomitant]
     Active Substance: DOCETAXEL
     Indication: Invasive ductal breast carcinoma
     Dosage: UNK
     Dates: start: 2020
  4. CARBOPLATIN [Concomitant]
     Active Substance: CARBOPLATIN
     Indication: Invasive ductal breast carcinoma
     Dosage: UNK
     Dates: start: 2020
  5. PERTUZUMAB [Concomitant]
     Active Substance: PERTUZUMAB
     Indication: Invasive ductal breast carcinoma
     Dosage: UNK
     Dates: start: 2020

REACTIONS (12)
  - Death [Fatal]
  - Metastases to bone [Unknown]
  - Metastases to gallbladder [Unknown]
  - Metastases to liver [Unknown]
  - Metastases to lung [Unknown]
  - Ascites [Unknown]
  - Breast cancer metastatic [Unknown]
  - Suicidal ideation [Unknown]
  - Cholecystitis acute [Unknown]
  - Necrosis [Unknown]
  - Therapy interrupted [Unknown]
  - Off label use [Unknown]

NARRATIVE: CASE EVENT DATE: 20200101
